FAERS Safety Report 12475641 (Version 1)
Quarter: 2016Q2

REPORT INFORMATION
  Report Type: Spontaneous
  Country: US (occurrence: US)
  Receive Date: 20160617
  Receipt Date: 20160617
  Transmission Date: 20160815
  Serious: No
  Sender: FDA-Public Use
  Company Number: US-AMGEN-USASP2016074551

PATIENT
  Age: 70 Year
  Sex: Female

DRUGS (7)
  1. CELECOXIB. [Concomitant]
     Active Substance: CELECOXIB
  2. PREDNISONE. [Concomitant]
     Active Substance: PREDNISONE
  3. MYRBETRIQ [Concomitant]
     Active Substance: MIRABEGRON
  4. SYNTHROID [Concomitant]
     Active Substance: LEVOTHYROXINE SODIUM
  5. ROPINIROLE. [Concomitant]
     Active Substance: ROPINIROLE
  6. CLONAZEPAM. [Concomitant]
     Active Substance: CLONAZEPAM
  7. ENBREL [Suspect]
     Active Substance: ETANERCEPT
     Indication: RHEUMATOID ARTHRITIS
     Dosage: 50 MG, QWK
     Route: 058
     Dates: start: 20160516

REACTIONS (2)
  - Seasonal allergy [Not Recovered/Not Resolved]
  - Pain in extremity [Unknown]

NARRATIVE: CASE EVENT DATE: 2016
